FAERS Safety Report 5235180-1 (Version None)
Quarter: 2007Q1

REPORT INFORMATION
  Report Type: 
  Country: None (occurrence: None)
  Receive Date: 20070208
  Receipt Date: 20070208
  Transmission Date: 20070707
  Serious: No
  Sender: FDA-Public Use
  Company Number: None

PATIENT
  Age: 35 Year
  Sex: Female
  Weight: 65.7716 kg

DRUGS (2)
  1. TUBERSOL [Suspect]
     Indication: ADVERSE DRUG REACTION
     Dosage: 5TU SQ R FP   YEARLY
     Dates: start: 19890101
  2. OMNICEF [Concomitant]

REACTIONS (4)
  - INJECTION SITE RASH [None]
  - PRURITUS [None]
  - RASH [None]
  - WHEEZING [None]
